FAERS Safety Report 21535585 (Version 2)
Quarter: 2022Q4

REPORT INFORMATION
  Report Type: Spontaneous
  Country: KR (occurrence: KR)
  Receive Date: 20221101
  Receipt Date: 20221101
  Transmission Date: 20230113
  Serious: Yes (Death, Other)
  Sender: FDA-Public Use
  Company Number: KR-PFIZER INC-PV202200087809

PATIENT
  Age: 10 Day
  Sex: Female
  Weight: 2.71 kg

DRUGS (3)
  1. SIROLIMUS [Suspect]
     Active Substance: SIROLIMUS
     Indication: Intracardiac mass
     Dosage: UNK
  2. AMIODARONE [Suspect]
     Active Substance: AMIODARONE
     Indication: Tachyarrhythmia
     Dosage: 5 MG/KG
     Route: 042
  3. AMIODARONE [Suspect]
     Active Substance: AMIODARONE
     Dosage: 10 MCG/KG/MIN, INFUSION

REACTIONS (3)
  - Cardiac arrest neonatal [Fatal]
  - Drug ineffective for unapproved indication [Fatal]
  - Off label use [Fatal]
